FAERS Safety Report 8197745-7 (Version None)
Quarter: 2012Q1

REPORT INFORMATION
  Report Type: 
  Country: None (occurrence: None)
  Receive Date: 20120309
  Receipt Date: 20120302
  Transmission Date: 20120608
  Serious: Yes (Other)
  Sender: FDA-Public Use
  Company Number: JP-JNJFOC-20111207714

PATIENT
  Age: 72 Year
  Sex: Female

DRUGS (3)
  1. GALANTAMINE HYDROBROMIDE [Suspect]
     Indication: DEMENTIA ALZHEIMER'S TYPE
     Route: 048
     Dates: start: 20110905, end: 20111207
  2. DONEPEZIL HCL [Concomitant]
     Route: 065
  3. GALANTAMINE HYDROBROMIDE [Suspect]
     Route: 048
     Dates: start: 20111208, end: 20111215

REACTIONS (2)
  - CARDIAC FAILURE CONGESTIVE [None]
  - TACHYCARDIA [None]
